FAERS Safety Report 11611157 (Version 1)
Quarter: 2015Q4

REPORT INFORMATION
  Report Type: Spontaneous
  Country: BR (occurrence: BR)
  Receive Date: 20151008
  Receipt Date: 20151008
  Transmission Date: 20160304
  Serious: Yes (Hospitalization)
  Sender: FDA-Public Use
  Company Number: BR-ROCHE-1643300

PATIENT
  Age: 71 Year
  Sex: Male
  Weight: 68.35 kg

DRUGS (9)
  1. DIGESAN [Concomitant]
     Active Substance: BROMOPRIDE
     Route: 048
  2. FAULDLEUCO [Suspect]
     Active Substance: LEUCOVORIN CALCIUM
     Indication: COLON CANCER
     Route: 042
     Dates: start: 20150506
  3. FAULDFLUOR [Suspect]
     Active Substance: FLUOROURACIL
     Indication: COLON CANCER
     Dosage: 400 MG/M2
     Route: 042
     Dates: start: 20150506
  4. FAULDFLUOR [Suspect]
     Active Substance: FLUOROURACIL
     Dosage: 3000 MG/M2
     Route: 041
     Dates: start: 20150506
  5. METFORMIN [Concomitant]
     Active Substance: METFORMIN HYDROCHLORIDE
     Route: 048
  6. OMEPRAZOLE. [Concomitant]
     Active Substance: OMEPRAZOLE
     Route: 048
  7. AVASTIN [Suspect]
     Active Substance: BEVACIZUMAB
     Indication: COLON CANCER
     Dosage: 15 MG/KG
     Route: 042
     Dates: start: 20150929
  8. TRAMAL [Concomitant]
     Active Substance: TRAMADOL
  9. IMOSEC [Concomitant]
     Active Substance: LOPERAMIDE
     Route: 048

REACTIONS (7)
  - Rash [Not Recovered/Not Resolved]
  - Altered state of consciousness [Not Recovered/Not Resolved]
  - Headache [Not Recovered/Not Resolved]
  - Visual impairment [Not Recovered/Not Resolved]
  - Hyperhidrosis [Not Recovered/Not Resolved]
  - Back pain [Not Recovered/Not Resolved]
  - Hypertension [Not Recovered/Not Resolved]

NARRATIVE: CASE EVENT DATE: 20150929
